FAERS Safety Report 8502616-X (Version None)
Quarter: 2012Q3

REPORT INFORMATION
  Report Type: 
  Country: None (occurrence: None)
  Receive Date: 20120711
  Receipt Date: 20120705
  Transmission Date: 20120928
  Serious: Yes (Hospitalization)
  Sender: FDA-Public Use
  Company Number: FR-PFIZER INC-2012161376

PATIENT
  Age: 80 Year
  Sex: Female

DRUGS (1)
  1. CRIZOTINIB [Suspect]
     Dosage: 250 MG, 2X/DAY
     Route: 048
     Dates: start: 20120504, end: 20120616

REACTIONS (4)
  - DIARRHOEA [None]
  - PHLEBITIS [None]
  - ASTHENIA [None]
  - DECREASED APPETITE [None]
